FAERS Safety Report 9909589 (Version 2)
Quarter: 2014Q1

REPORT INFORMATION
  Report Type: Spontaneous
  Country: GB (occurrence: GB)
  Receive Date: 20140219
  Receipt Date: 20140219
  Transmission Date: 20141002
  Serious: Yes (Death)
  Sender: FDA-Public Use
  Company Number: GB-PFIZER INC-2013354689

PATIENT
  Age: 75 Year
  Sex: Male

DRUGS (2)
  1. AXITINIB [Suspect]
     Indication: METASTATIC RENAL CELL CARCINOMA
     Dosage: 5 MG, 2X/DAY
     Route: 048
     Dates: start: 201303, end: 201311
  2. PARACETAMOL [Concomitant]

REACTIONS (3)
  - Death [Fatal]
  - Asthenia [Unknown]
  - Dysphonia [Unknown]
